FAERS Safety Report 6132589-9 (Version None)
Quarter: 2009Q1

REPORT INFORMATION
  Report Type: 
  Country: None (occurrence: None)
  Receive Date: 20090324
  Receipt Date: 20090317
  Transmission Date: 20090719
  Serious: Yes (Other)
  Sender: FDA-Public Use
  Company Number: GXKR2009DE03406

PATIENT
  Age: 70 Year
  Sex: Male

DRUGS (4)
  1. ALLOPURINOL [Suspect]
     Dosage: 300 MG, ORAL
     Route: 048
  2. DRUG THERAPY NOS (DRUG THERAPY NOS) [Suspect]
  3. LISINOPRIL [Concomitant]
  4. METOPROLOL TARTRATE [Concomitant]

REACTIONS (2)
  - DRUG INTERACTION [None]
  - HAEMORRHAGE [None]
